FAERS Safety Report 13810253 (Version 3)
Quarter: 2017Q3

REPORT INFORMATION
  Report Type: Spontaneous
  Country: HU (occurrence: HU)
  Receive Date: 20170728
  Receipt Date: 20170919
  Transmission Date: 20171127
  Serious: Yes (Other)
  Sender: FDA-Public Use
  Company Number: HU-PFIZER INC-2017245782

PATIENT
  Age: 54 Year
  Sex: Male

DRUGS (5)
  1. INLYTA [Suspect]
     Active Substance: AXITINIB
     Indication: RENAL CANCER
     Dosage: 5 MG, TWICE A DAY
     Route: 048
     Dates: start: 20170515
  2. CONCOR [Concomitant]
     Active Substance: BISOPROLOL FUMARATE
     Dosage: 2.5 MG, 1X/DAY (5 MG  MORNING: 1/2)
  3. XETER [Concomitant]
     Active Substance: ROSUVASTATIN CALCIUM
     Dosage: 20 MG, 1X/DAY
  4. ASACTAL [Concomitant]
     Active Substance: ASPIRIN
     Dosage: 100 MG, 1X/DAY
  5. APO FAMOTIDINE [Concomitant]
     Dosage: 40 MG, 1X/DAY

REACTIONS (7)
  - Blood thyroid stimulating hormone increased [Unknown]
  - Decreased appetite [Not Recovered/Not Resolved]
  - Mood altered [Not Recovered/Not Resolved]
  - Asthenia [Not Recovered/Not Resolved]
  - Diarrhoea [Recovering/Resolving]
  - Dysphonia [Not Recovered/Not Resolved]
  - Dyspnoea [Not Recovered/Not Resolved]

NARRATIVE: CASE EVENT DATE: 20170528
